FAERS Safety Report 9149044 (Version 1)
Quarter: 2013Q1

REPORT INFORMATION
  Report Type: Spontaneous
  Country: US (occurrence: None)
  Receive Date: 20130226
  Receipt Date: 20130226
  Transmission Date: 20140127
  Serious: Yes (Death)
  Sender: FDA-Public Use
  Company Number: BTG00059

PATIENT
  Age: 74 Year
  Sex: Male

DRUGS (3)
  1. DIGIFAB [Suspect]
     Indication: TOXICITY TO VARIOUS AGENTS
     Dates: start: 201207, end: 201207
  2. DIGOXIN (DIGOXIN) [Suspect]
     Indication: ATRIAL FIBRILLATION
  3. AMIODARONE (AMIODARONE) [Concomitant]

REACTIONS (9)
  - Drug ineffective [None]
  - Cardioactive drug level increased [None]
  - Haemodialysis [None]
  - Toxicity to various agents [None]
  - Vision blurred [None]
  - Nausea [None]
  - Vomiting [None]
  - Hypophagia [None]
  - Renal impairment [None]
